FAERS Safety Report 7179442-X (Version None)
Quarter: 2010Q4

REPORT INFORMATION
  Report Type: 
  Country: None (occurrence: None)
  Receive Date: 20101221
  Receipt Date: 20101209
  Transmission Date: 20110411
  Serious: Yes (Death)
  Sender: FDA-Public Use
  Company Number: GXKR2010CH13984

PATIENT
  Age: 19 Year
  Sex: Male

DRUGS (5)
  1. ETOPOSIDE [Suspect]
     Route: 065
  2. CYCLOPHOSPHAMIDE [Suspect]
     Route: 065
  3. ANTI-THYMOCYTE GLOBULIN NOS [Suspect]
     Route: 065
  4. COTRIM [Suspect]
  5. ATOVAQUONE [Concomitant]
     Indication: PNEUMOCYSTIS JIROVECI PNEUMONIA
     Route: 065

REACTIONS (13)
  - ACIDOSIS [None]
  - ACUTE RESPIRATORY DISTRESS SYNDROME [None]
  - ASPERGILLOSIS [None]
  - CARDIAC FAILURE [None]
  - HYPOTENSION [None]
  - MALAISE [None]
  - MECHANICAL VENTILATION COMPLICATION [None]
  - MULTI-ORGAN FAILURE [None]
  - PNEUMONIA CYTOMEGALOVIRAL [None]
  - PYREXIA [None]
  - RASH MACULO-PAPULAR [None]
  - RENAL FAILURE [None]
  - TOXOPLASMOSIS [None]
